FAERS Safety Report 25139265 (Version 2)
Quarter: 2025Q2

REPORT INFORMATION
  Report Type: Spontaneous
  Country: US (occurrence: US)
  Receive Date: 20250331
  Receipt Date: 20250404
  Transmission Date: 20250717
  Serious: Yes (Other)
  Sender: REGENERON
  Company Number: US-REGENERON PHARMACEUTICALS, INC.-2025-055214

PATIENT
  Sex: Female

DRUGS (3)
  1. EYLEA [Suspect]
     Active Substance: AFLIBERCEPT
     Indication: Cystoid macular oedema
     Dosage: 2 MG, ONCE A MONTH; FORMULATION: 2 MG (UNKNOWN)
  2. EYLEA [Suspect]
     Active Substance: AFLIBERCEPT
     Dosage: 2 MG, ONCE A MONTH; FORMULATION: 2 MG (UNKNOWN)
  3. EYLEA [Suspect]
     Active Substance: AFLIBERCEPT
     Dosage: 2 MG, ONCE A MONTH; FORMULATION: 2 MG (UNKNOWN)

REACTIONS (5)
  - Cystoid macular oedema [Unknown]
  - Condition aggravated [Unknown]
  - Intentional dose omission [Unknown]
  - Off label use [Unknown]
  - Drug effective for unapproved indication [Unknown]
